FAERS Safety Report 4408668-0 (Version None)
Quarter: 2004Q3

REPORT INFORMATION
  Report Type: 
  Country: None (occurrence: None)
  Receive Date: 20040723
  Receipt Date: 20040712
  Transmission Date: 20050211
  Serious: Yes (Hospitalization, Disabling)
  Sender: FDA-Public Use
  Company Number: OSCN-NO-0311S-0309

PATIENT
  Age: 66 Year
  Sex: Male

DRUGS (8)
  1. OMNISCAN [Suspect]
     Indication: RENAL ARTERY STENOSIS
     Dosage: 30 ML, SINGLE DOSE, I.V.
     Route: 042
     Dates: start: 20031028, end: 20031028
  2. DIGOXIN [Concomitant]
  3. CARVEDILOL (DIMITONE) [Concomitant]
  4. TRANDOLAPRIL (ODRIK) [Concomitant]
  5. FUROSEMIDE [Concomitant]
  6. INSULIN HUMAN INJECTION, ISOPHANE (INSULATARD) [Concomitant]
  7. SPIRONOLACTONE (SPIRON) [Concomitant]
  8. BENDROFLUMETHIAZIDE (CENTYL) [Concomitant]

REACTIONS (12)
  - ANURIA [None]
  - AZOTAEMIA [None]
  - CARDIAC FAILURE [None]
  - CATHETER RELATED INFECTION [None]
  - DIARRHOEA [None]
  - FLUID RETENTION [None]
  - HAEMODIALYSIS [None]
  - METABOLIC ACIDOSIS [None]
  - PULMONARY OEDEMA [None]
  - RENAL FAILURE [None]
  - RESPIRATORY DISTRESS [None]
  - SEPSIS [None]
